FAERS Safety Report 9916474 (Version 1)
Quarter: 2014Q1

REPORT INFORMATION
  Report Type: Spontaneous
  Country: GB (occurrence: GB)
  Receive Date: 20140221
  Receipt Date: 20140221
  Transmission Date: 20141002
  Serious: Yes (Other)
  Sender: FDA-Public Use
  Company Number: GB-009507513-1402GBR009053

PATIENT
  Age: 33 Year
  Sex: Female
  Weight: 88.44 kg

DRUGS (3)
  1. ETONOGESTREL [Suspect]
     Indication: CONTRACEPTION
     Dosage: UNK
     Route: 051
     Dates: start: 201304
  2. IBUPROFEN [Concomitant]
  3. ACETAMINOPHEN [Concomitant]

REACTIONS (3)
  - Muscle spasms [Not Recovered/Not Resolved]
  - Menorrhagia [Not Recovered/Not Resolved]
  - Abdominal pain [Not Recovered/Not Resolved]
